FAERS Safety Report 11936357 (Version 1)
Quarter: 2016Q1

REPORT INFORMATION
  Report Type: Spontaneous
  Country: US (occurrence: US)
  Receive Date: 20160121
  Receipt Date: 20160121
  Transmission Date: 20160526
  Serious: No
  Sender: FDA-Public Use
  Company Number: US-BAYER-2016-011754

PATIENT
  Age: 76 Year
  Sex: Female
  Weight: 71.66 kg

DRUGS (2)
  1. MILK OF MAGNESIA ORIGINAL [Suspect]
     Active Substance: MAGNESIUM HYDROXIDE
     Indication: CONSTIPATION
     Dosage: 2-3 TABLESPOONS EVERY OTHER NIGHT FOR OVER 5 YEARS
     Route: 048
  2. MIRALAX [Suspect]
     Active Substance: POLYETHYLENE GLYCOL 3350
     Indication: CONSTIPATION
     Dosage: TAKE THIS EVERY OTHER NIGHT FOR ABOUT 4-5 YEARS
     Route: 048

REACTIONS (2)
  - Product use issue [None]
  - Constipation [Recovered/Resolved]

NARRATIVE: CASE EVENT DATE: 201601
